FAERS Safety Report 7417201-0 (Version None)
Quarter: 2011Q2

REPORT INFORMATION
  Report Type: 
  Country: None (occurrence: None)
  Receive Date: 20110415
  Receipt Date: 20101124
  Transmission Date: 20111010
  Serious: Yes (Hospitalization)
  Sender: FDA-Public Use
  Company Number: US-BAYER-201031687NA

PATIENT
  Age: 34 Year
  Sex: Female
  Weight: 58.05 kg

DRUGS (12)
  1. IBUPROFEN [Concomitant]
     Dosage: UNK
     Dates: start: 19950101
  2. MOTRIN [Concomitant]
     Dosage: UNK
     Dates: start: 19950101
  3. ZOLOFT [Concomitant]
     Indication: DEPRESSION
     Dosage: UNK
     Dates: start: 20080101
  4. VITAMINS NOS [Concomitant]
     Indication: VITAMIN SUPPLEMENTATION
     Dosage: UNK
     Dates: start: 20080201
  5. YASMIN [Suspect]
     Dosage: UNK
  6. CIPRO [Concomitant]
     Indication: CYSTITIS
  7. ZOLOFT [Concomitant]
     Indication: PREMENSTRUAL SYNDROME
  8. BUDEPRION [Concomitant]
     Dosage: UNK
  9. ALEVE [Concomitant]
     Dosage: UNK
     Dates: start: 19950101
  10. YAZ [Suspect]
     Indication: CONTRACEPTION
     Dosage: UNK UNK, QD
     Dates: start: 20080201
  11. ZYRTEC [Concomitant]
     Indication: MULTIPLE ALLERGIES
     Dosage: UNK
     Dates: start: 19950101
  12. CIPRO [Concomitant]
     Indication: KIDNEY INFECTION
     Dosage: UNK
     Dates: start: 19950101

REACTIONS (3)
  - PAIN [None]
  - CHOLECYSTITIS CHRONIC [None]
  - GALLBLADDER DISORDER [None]
